FAERS Safety Report 8769539 (Version 2)
Quarter: 2012Q4

REPORT INFORMATION
  Report Type: 
  Country: US (occurrence: US)
  Receive Date: 20120905
  Receipt Date: 20120924
  Transmission Date: 20130627
  Serious: No
  Sender: FDA-Public Use
  Company Number: US-PFIZER INC-2012214014

PATIENT
  Sex: Female
  Weight: 66.21 kg

DRUGS (16)
  1. CHANTIX [Suspect]
     Indication: SMOKING CESSATION THERAPY
     Dosage: UNK
     Route: 048
  2. NICOTROL INHALER [Suspect]
     Indication: SMOKING CESSATION THERAPY
     Dosage: 4 mg, as needed
     Dates: start: 2012
  3. WELLBUTRIN [Suspect]
     Dosage: UNK
     Route: 048
  4. PRO-AIR HFA [Concomitant]
     Indication: CHRONIC OBSTRUCTIVE PULMONARY DISEASE
     Dosage: 90 ug, as needed
  5. LEVOTHYROXINE [Concomitant]
     Indication: THYROID DISORDER
     Dosage: 75 ug, daily
  6. ZOLOFT [Concomitant]
     Indication: DEPRESSION
     Dosage: 100 mg, daily
  7. TRAZODONE [Concomitant]
     Indication: SLEEP DISORDER
     Dosage: 150 mg, as needed
  8. TRAZODONE [Concomitant]
     Indication: DEPRESSION
  9. VALIUM [Concomitant]
     Indication: ANXIETY
     Dosage: 0.5 mg, as needed
     Route: 048
  10. NEXIUM [Concomitant]
     Indication: GASTRIC DISORDER
     Dosage: 40 mg, daily
     Route: 048
  11. MAXZIDE [Concomitant]
     Indication: FLUID RETENTION
     Dosage: 75/50 mg, daily
     Route: 048
  12. ORPHENADRINE CITRATE [Concomitant]
     Indication: MUSCLE RELAXANT THERAPY
     Dosage: 100 mg, 2x/day
     Route: 048
  13. POTASSIUM [Concomitant]
     Indication: MUSCLE SPASMS
     Dosage: 100 mEq, 2x/day
  14. MS-CONTIN [Concomitant]
     Indication: PAIN
     Dosage: 30 mg, 3x/day
     Route: 048
  15. MS CONTIN [Concomitant]
     Indication: PAIN
     Dosage: 30 mg, 3x/day
     Route: 048
  16. LAMOTRIGINE [Concomitant]
     Indication: BIPOLAR DISORDER
     Dosage: (150 mg in the morning and one and half at bedtime), 2x/day
     Route: 048

REACTIONS (4)
  - Drug ineffective [Unknown]
  - Nausea [Not Recovered/Not Resolved]
  - Dizziness [Unknown]
  - Drug ineffective [Unknown]
